FAERS Safety Report 20682566 (Version 3)
Quarter: 2022Q3

REPORT INFORMATION
  Report Type: Spontaneous
  Country: US (occurrence: US)
  Receive Date: 20220407
  Receipt Date: 20220715
  Transmission Date: 20221026
  Serious: Yes (Other)
  Sender: FDA-Public Use
  Company Number: US-JNJFOC-20220406514

PATIENT
  Age: 63 Year
  Sex: Female

DRUGS (2)
  1. ELMIRON [Suspect]
     Active Substance: PENTOSAN POLYSULFATE SODIUM
     Indication: Cystitis interstitial
     Dosage: UNKNOWN DOSAGE, TO BE SUPPLEMENTED; 3 TIMES PER DAY
     Route: 048
     Dates: start: 200001, end: 202001
  2. ELMIRON [Suspect]
     Active Substance: PENTOSAN POLYSULFATE SODIUM
     Route: 048

REACTIONS (3)
  - Macular degeneration [Unknown]
  - Cystoid macular oedema [Recovered/Resolved]
  - Maculopathy [Unknown]

NARRATIVE: CASE EVENT DATE: 20190701
